FAERS Safety Report 13419216 (Version 1)
Quarter: 2017Q2

REPORT INFORMATION
  Report Type: Report from Study
  Country: US (occurrence: US)
  Receive Date: 20170407
  Receipt Date: 20170407
  Transmission Date: 20170830
  Serious: Yes (Other)
  Sender: FDA-Public Use
  Company Number: US-ROCHE-1914025

PATIENT
  Age: 48 Year
  Sex: Male

DRUGS (7)
  1. CLONAZEPAM. [Suspect]
     Active Substance: CLONAZEPAM
     Indication: PRODUCT USED FOR UNKNOWN INDICATION
     Route: 065
  2. TRAZODONE [Suspect]
     Active Substance: TRAZODONE HYDROCHLORIDE
     Indication: PRODUCT USED FOR UNKNOWN INDICATION
     Route: 065
  3. SODIUM BICARBONATE. [Concomitant]
     Active Substance: SODIUM BICARBONATE
  4. METHYLENE BLUE. [Concomitant]
     Active Substance: METHYLENE BLUE
  5. THIAMINE. [Concomitant]
     Active Substance: THIAMINE
  6. ALBUTEROL. [Concomitant]
     Active Substance: ALBUTEROL
  7. METFORMIN [Suspect]
     Active Substance: METFORMIN HYDROCHLORIDE
     Indication: PRODUCT USED FOR UNKNOWN INDICATION
     Route: 065

REACTIONS (10)
  - Acute respiratory distress syndrome [Unknown]
  - Coma [Unknown]
  - Metabolic acidosis [Unknown]
  - Bradycardia [Unknown]
  - Hypotension [Unknown]
  - Ventricular arrhythmia [Unknown]
  - Hypoglycaemia [Unknown]
  - Acidosis [Unknown]
  - Acute kidney injury [Unknown]
  - Haemolysis [Unknown]
